FAERS Safety Report 7463568-7 (Version None)
Quarter: 2011Q2

REPORT INFORMATION
  Report Type: 
  Country: None (occurrence: None)
  Receive Date: 20110506
  Receipt Date: 20110502
  Transmission Date: 20111010
  Serious: Yes (Disabling)
  Sender: FDA-Public Use
  Company Number: US-PERRIGO-11US001001

PATIENT
  Sex: Male
  Weight: 104.31 kg

DRUGS (5)
  1. PROTONIX [Concomitant]
     Indication: PRODUCT USED FOR UNKNOWN INDICATION
     Dosage: UNK
     Route: 048
     Dates: start: 20090217
  2. VIAGRA [Concomitant]
     Indication: ERECTILE DYSFUNCTION
     Dosage: UNK
     Route: 048
     Dates: start: 20100428
  3. ZINC CHLORIDE [Suspect]
     Indication: NASOPHARYNGITIS
     Dosage: 1 TABLET, SINGLE
     Route: 048
     Dates: start: 20110201, end: 20110201
  4. MULTIVITAMINS PLUS IRON [Concomitant]
     Indication: ROUTINE HEALTH MAINTENANCE
     Dosage: UNK
     Route: 048
     Dates: start: 20090225
  5. PAROXETINE HCL [Concomitant]
     Indication: PRODUCT USED FOR UNKNOWN INDICATION
     Dosage: UNK
     Route: 048
     Dates: start: 20090701

REACTIONS (2)
  - ANOSMIA [None]
  - AGEUSIA [None]
